FAERS Safety Report 23882520 (Version 2)
Quarter: 2024Q2

REPORT INFORMATION
  Report Type: Spontaneous
  Country: FR (occurrence: FR)
  Receive Date: 20240522
  Receipt Date: 20240620
  Transmission Date: 20240716
  Serious: Yes (Other)
  Sender: FDA-Public Use
  Company Number: FR-CELLTRION INC.-2024FR011691

PATIENT

DRUGS (11)
  1. YUFLYMA [Suspect]
     Active Substance: ADALIMUMAB-AATY
     Indication: Crohn^s disease
     Dosage: 40 MILLIGRAM, ONE INJECTION EVERY 2 WEEKS
     Route: 058
     Dates: start: 20240327
  2. YUFLYMA [Suspect]
     Active Substance: ADALIMUMAB-AATY
     Dosage: 80 MILLIGRAM
     Route: 058
     Dates: start: 20240511
  3. YUFLYMA [Suspect]
     Active Substance: ADALIMUMAB-AATY
     Dosage: 40 MG INJECTION
     Dates: start: 20240515
  4. COLCHICINE [Concomitant]
     Active Substance: COLCHICINE
     Indication: Product used for unknown indication
  5. TRIMEBUTINE [Concomitant]
     Active Substance: TRIMEBUTINE
     Indication: Pain
  6. ACETAMINOPHEN\BELLADONNA LEAF\CAFFEINE\OPIUM [Concomitant]
     Active Substance: ACETAMINOPHEN\BELLADONNA LEAF\CAFFEINE\OPIUM
     Indication: Pain
  7. CODEINE [Concomitant]
     Active Substance: CODEINE
     Indication: Pain
  8. ETHINYL ESTRADIOL\LEVONORGESTREL [Concomitant]
     Active Substance: ETHINYL ESTRADIOL\LEVONORGESTREL
     Indication: Contraceptive cap
  9. SPAGULAX [Concomitant]
     Active Substance: HERBALS\PLANTAGO OVATA SEED
     Dosage: 2 TO 6 SACHETS PER DAY TO REBALANACE TRANSIT
  10. POTASSIUM BITARTRATE\SODIUM BICARBONATE [Concomitant]
     Active Substance: POTASSIUM BITARTRATE\SODIUM BICARBONATE
     Indication: Constipation
     Dosage: ONE PER DAY IF NECESSARY FOR CONSTIPATION
  11. CHOLECALCIFEROL [Concomitant]
     Active Substance: CHOLECALCIFEROL
     Dosage: 1 AMPOULE EVERY 2 MONTHS

REACTIONS (4)
  - Symptom recurrence [Unknown]
  - Wrong technique in product usage process [Unknown]
  - Incorrect dose administered [Unknown]
  - Product dispensing error [Unknown]
